FAERS Safety Report 25250181 (Version 1)
Quarter: 2025Q2

REPORT INFORMATION
  Report Type: Report from Study
  Country: US (occurrence: US)
  Receive Date: 20250429
  Receipt Date: 20250429
  Transmission Date: 20250717
  Serious: Yes (Death)
  Sender: BAYER HEALTHCARE PHARMACEUTICALS INC.
  Company Number: US-BAYER-2025A058219

PATIENT
  Sex: Female
  Weight: 109.89 kg

DRUGS (14)
  1. ADEMPAS [Suspect]
     Active Substance: RIOCIGUAT
     Indication: Pulmonary arterial hypertension
     Dates: start: 20241213
  2. ADEMPAS [Suspect]
     Active Substance: RIOCIGUAT
     Indication: Pulmonary arterial hypertension
     Dosage: 1 MG, TID
     Route: 048
  3. OPSUMIT [Concomitant]
     Active Substance: MACITENTAN
  4. TYVASO [Concomitant]
     Active Substance: TREPROSTINIL
  5. ELIQUIS [Concomitant]
     Active Substance: APIXABAN
  6. METOPROLOL TARTRATE [Concomitant]
     Active Substance: METOPROLOL TARTRATE
  7. MIDODRINE [Concomitant]
     Active Substance: MIDODRINE
  8. OXYGEN [Concomitant]
     Active Substance: OXYGEN
  9. MINOCYCLINE [Concomitant]
     Active Substance: MINOCYCLINE HYDROCHLORIDE
  10. LEVOTHYROXINE [Concomitant]
     Active Substance: LEVOTHYROXINE
  11. SPIRONOLACTONE [Concomitant]
     Active Substance: SPIRONOLACTONE
  12. FESOTERODINE FUMARATE [Concomitant]
     Active Substance: FESOTERODINE FUMARATE
  13. LISINOPRIL [Concomitant]
     Active Substance: LISINOPRIL
  14. RETIN-A [Concomitant]
     Active Substance: TRETINOIN

REACTIONS (1)
  - Death [Fatal]
